FAERS Safety Report 6966855-1 (Version None)
Quarter: 2010Q3

REPORT INFORMATION
  Report Type: 
  Country: None (occurrence: None)
  Receive Date: 20100906
  Receipt Date: 20100826
  Transmission Date: 20110219
  Serious: Yes (Other)
  Sender: FDA-Public Use
  Company Number: PHHY2010US56850

PATIENT
  Age: 97 Year

DRUGS (1)
  1. LOPRESSOR [Suspect]

REACTIONS (2)
  - MENTAL STATUS CHANGES [None]
  - SURGERY [None]
